FAERS Safety Report 4172055 (Version 2)
Quarter: 2012Q4

REPORT INFORMATION
  Report Type: 
  Country: US (occurrence: US)
  Receive Date: 20040708
  Receipt Date: 20121206
  Transmission Date: 20130627
  Serious: Yes (Other)
  Sender: FDA-Public Use
  Company Number: US-JNJFOC-20040700564

PATIENT
  Age: 50 Year
  Sex: Male

DRUGS (2)
  1. MOTRIN IB [Suspect]
     Route: 048
  2. MOTRIN IB [Suspect]
     Indication: BONE PAIN
     Route: 048
     Dates: start: 200109, end: 200202

REACTIONS (2)
  - Henoch-Schonlein purpura [Unknown]
  - Iron deficiency anaemia [Unknown]
